FAERS Safety Report 8122278-3 (Version None)
Quarter: 2012Q1

REPORT INFORMATION
  Report Type: 
  Country: None (occurrence: None)
  Receive Date: 20120206
  Receipt Date: 20120202
  Transmission Date: 20120608
  Serious: Yes (Hospitalization, Other)
  Sender: FDA-Public Use
  Company Number: 2011SP016578

PATIENT
  Age: 24 Year
  Sex: Female
  Weight: 89.8122 kg

DRUGS (1)
  1. NUVARING [Suspect]
     Indication: CONTRACEPTION
     Dates: start: 20090409, end: 20090424

REACTIONS (23)
  - GASTROOESOPHAGEAL REFLUX DISEASE [None]
  - OBESITY [None]
  - SINUS TACHYCARDIA [None]
  - BLOOD CHOLESTEROL INCREASED [None]
  - JOINT INJURY [None]
  - ATELECTASIS [None]
  - ABSCESS LIMB [None]
  - CHEST PAIN [None]
  - MUSCLE SPASMS [None]
  - PULMONARY VALVE INCOMPETENCE [None]
  - ARTHRALGIA [None]
  - URINARY TRACT INFECTION [None]
  - MENTAL DISORDER [None]
  - OROPHARYNGEAL PAIN [None]
  - CELLULITIS [None]
  - UPPER RESPIRATORY TRACT INFECTION [None]
  - DIABETES MELLITUS [None]
  - PULMONARY EMBOLISM [None]
  - EMOTIONAL DISORDER [None]
  - PLEURITIC PAIN [None]
  - PLEURISY [None]
  - ARTHROPOD BITE [None]
  - HYPERCOAGULATION [None]
